FAERS Safety Report 6612406-0 (Version None)
Quarter: 2010Q1

REPORT INFORMATION
  Report Type: 
  Country: None (occurrence: None)
  Receive Date: 20100303
  Receipt Date: 20100219
  Transmission Date: 20100710
  Serious: Yes (Other)
  Sender: FDA-Public Use
  Company Number: PHHY2010CA09760

PATIENT
  Sex: Male

DRUGS (1)
  1. DIOVAN HCT [Suspect]
     Dosage: 1 TABLET (160/12.5 MG) PER DAY
     Route: 048

REACTIONS (2)
  - TOOTH EROSION [None]
  - TOOTH EXTRACTION [None]
